FAERS Safety Report 19185081 (Version 3)
Quarter: 2021Q2

REPORT INFORMATION
  Report Type: Report from Study
  Country: BR (occurrence: BR)
  Receive Date: 20210427
  Receipt Date: 20210608
  Transmission Date: 20210717
  Serious: Yes (Other)
  Sender: FDA-Public Use
  Company Number: NVSC2020BR343482

PATIENT
  Sex: Male
  Weight: 65 kg

DRUGS (3)
  1. COSENTYX [Suspect]
     Active Substance: SECUKINUMAB
     Indication: PSORIASIS
     Dosage: 300 MG, QMO (2 AMPOULES OF 150 MG)
     Route: 058
     Dates: start: 20190726
  2. COSENTYX [Suspect]
     Active Substance: SECUKINUMAB
     Dosage: 300 MG
     Route: 065
     Dates: start: 202005
  3. COSENTYX [Suspect]
     Active Substance: SECUKINUMAB
     Dosage: UNK
     Route: 065
     Dates: start: 20210408

REACTIONS (22)
  - Psoriasis [Recovering/Resolving]
  - Swelling [Recovered/Resolved]
  - Lung disorder [Recovered/Resolved]
  - Eating disorder [Recovered/Resolved]
  - Movement disorder [Recovering/Resolving]
  - Productive cough [Recovered/Resolved]
  - Cough [Recovered/Resolved]
  - Skin exfoliation [Recovering/Resolving]
  - Pain [Not Recovered/Not Resolved]
  - Pigmentation disorder [Unknown]
  - Toothache [Recovered/Resolved]
  - Tuberculosis [Recovered/Resolved]
  - Nausea [Recovered/Resolved]
  - Skin disorder [Recovering/Resolving]
  - Scab [Recovering/Resolving]
  - Pyrexia [Unknown]
  - Aggression [Recovering/Resolving]
  - Back pain [Recovered/Resolved]
  - Skin haemorrhage [Recovering/Resolving]
  - Somnolence [Recovered/Resolved]
  - Dry skin [Recovering/Resolving]
  - Skin fissures [Recovering/Resolving]

NARRATIVE: CASE EVENT DATE: 2019
